FAERS Safety Report 5694938-5 (Version None)
Quarter: 2008Q2

REPORT INFORMATION
  Report Type: 
  Country: None (occurrence: None)
  Receive Date: 20080404
  Receipt Date: 20080323
  Transmission Date: 20081010
  Serious: Yes (Other)
  Sender: FDA-Public Use
  Company Number: ID-JNJFOC-20080305623

PATIENT
  Age: 88 Year
  Sex: Female

DRUGS (8)
  1. GALANTAMINE HYDROBROMIDE [Suspect]
     Route: 048
  2. GALANTAMINE HYDROBROMIDE [Suspect]
     Indication: APATHY
     Route: 048
  3. MAXIPIME [Concomitant]
     Indication: URINARY TRACT INFECTION
     Route: 042
  4. NOVO RAPID [Concomitant]
     Indication: DIABETES MELLITUS
     Route: 058
  5. NEXIUM [Concomitant]
     Indication: DIVERTICULITIS
  6. DILTIAZEM HCL [Concomitant]
     Indication: HYPERTENSION
     Route: 048
  7. CEDOCARD [Concomitant]
     Indication: DEPENDENCE
     Route: 048
  8. INPEPSA [Concomitant]
     Indication: DYSPEPSIA
     Route: 048

REACTIONS (4)
  - DYSKINESIA [None]
  - INCONTINENCE [None]
  - SOMNOLENCE [None]
  - TREMOR [None]
